FAERS Safety Report 11692777 (Version 1)
Quarter: 2015Q4

REPORT INFORMATION
  Report Type: Spontaneous
  Country: US (occurrence: None)
  Receive Date: 20151102
  Receipt Date: 20151102
  Transmission Date: 20160304
  Serious: Yes (Death)
  Sender: FDA-Public Use
  Company Number: None

PATIENT
  Age: 84 Year
  Sex: Male

DRUGS (1)
  1. STIVARGA [Suspect]
     Active Substance: REGORAFENIB
     Indication: PROSTATE CANCER
     Dosage: 80MG DAILY FOR 14 DAYS
     Route: 048
     Dates: start: 20150831, end: 20151001

REACTIONS (1)
  - Death [None]

NARRATIVE: CASE EVENT DATE: 20151001
